FAERS Safety Report 6204703-8 (Version None)
Quarter: 2009Q2

REPORT INFORMATION
  Report Type: 
  Country: None (occurrence: None)
  Receive Date: 20090527
  Receipt Date: 20090519
  Transmission Date: 20091009
  Serious: Yes (Disabling, Other)
  Sender: FDA-Public Use
  Company Number: PHHY2009JP08504

PATIENT
  Sex: Female

DRUGS (12)
  1. ZOMETA [Suspect]
     Indication: METASTASES TO BONE
     Dosage: UNK
     Route: 042
     Dates: start: 20070410, end: 20080520
  2. AREDIA [Suspect]
     Indication: METASTASES TO BONE
     Dosage: 90 MG, UNK
     Route: 042
     Dates: start: 20040101, end: 20070101
  3. AREDIA [Suspect]
     Dosage: UNK
     Route: 042
     Dates: start: 20080820, end: 20081118
  4. FEMARA [Concomitant]
     Indication: BREAST CANCER
     Dosage: 2.5MG
     Route: 048
     Dates: start: 20071225
  5. NOLVADEX [Concomitant]
     Indication: BREAST CANCER
     Dosage: UNK
  6. HYSRON [Concomitant]
     Indication: BREAST CANCER
     Dosage: 600MG
     Dates: end: 20030902
  7. AROMASIN [Concomitant]
     Indication: BREAST CANCER
     Dosage: 25 MG
     Dates: start: 20040302, end: 20071225
  8. THYRADIN [Concomitant]
     Indication: THYROID OPERATION
     Dosage: 100 UG
  9. ALFAROL [Concomitant]
     Indication: OSTEOPOROSIS
     Dosage: 1UG
     Dates: start: 20031017
  10. GASTER D [Concomitant]
     Indication: GASTRITIS
     Dosage: 20MG
     Dates: start: 20031209
  11. HYPEN [Concomitant]
     Indication: CANCER PAIN
     Dosage: 400MG
     Dates: start: 20070410
  12. DOGMATYL [Concomitant]
     Indication: DEPRESSION
     Dosage: 100MG
     Dates: start: 20070410

REACTIONS (7)
  - BONE DISORDER [None]
  - BONE PAIN [None]
  - OSTEITIS [None]
  - OSTEOMYELITIS [None]
  - PAIN IN JAW [None]
  - PERIODONTITIS [None]
  - PURULENT DISCHARGE [None]
